FAERS Safety Report 4844763-X (Version None)
Quarter: 2005Q4

REPORT INFORMATION
  Report Type: 
  Country: None (occurrence: None)
  Receive Date: 20051201
  Receipt Date: 20051201
  Transmission Date: 20060501
  Serious: Yes (Hospitalization)
  Sender: FDA-Public Use
  Company Number: None

PATIENT
  Age: 73 Year
  Sex: Male
  Weight: 64.4108 kg

DRUGS (9)
  1. OXALIPLITIN @ 130 MG/M2 Q 3 WKS [Suspect]
     Indication: OESOPHAGEAL CANCER METASTATIC
     Dosage: 230 MG
     Dates: start: 20050927
  2. OXALIPLITIN @ 130 MG/M2 Q 3 WKS [Suspect]
     Indication: OESOPHAGEAL CANCER METASTATIC
     Dosage: 230 MG
     Dates: start: 20051018
  3. OXALIPLITIN @ 130 MG/M2 Q 3 WKS [Suspect]
     Indication: OESOPHAGEAL CANCER METASTATIC
     Dosage: 230 MG
     Dates: start: 20051115
  4. DOCETAXEL @ 45 MG/M2 Q WK X2 OF 3 [Suspect]
     Indication: OESOPHAGEAL CANCER METASTATIC
     Dosage: 79.6 MG
     Dates: start: 20050927, end: 20051122
  5. LIPITOR [Concomitant]
  6. METOPROLOL [Concomitant]
  7. PERCOCET [Concomitant]
  8. K-DUR 10 [Concomitant]
  9. KAPECTATE [Concomitant]

REACTIONS (3)
  - DEEP VEIN THROMBOSIS [None]
  - NEUTROPENIA [None]
  - PNEUMONIA [None]
